FAERS Safety Report 8958209 (Version 1)
Quarter: 2012Q4

REPORT INFORMATION
  Report Type: Report from Study
  Country: BE (occurrence: BE)
  Receive Date: 20121211
  Receipt Date: 20121211
  Transmission Date: 20130627
  Serious: Yes (Hospitalization)
  Sender: FDA-Public Use
  Company Number: PHHO2012BE016516

PATIENT
  Age: 17 Year
  Sex: Female
  Weight: 50 kg

DRUGS (3)
  1. ACZ885 [Suspect]
     Indication: JUVENILE ARTHRITIS
     Dosage: 4 mg/kg, every 4 weeks
     Route: 058
     Dates: start: 20120329, end: 20121010
  2. METHOTREXATE [Concomitant]
     Indication: JUVENILE ARTHRITIS
     Dosage: 15 mg, QW
     Route: 048
     Dates: start: 20101217, end: 20121010
  3. XYZALL [Concomitant]
     Indication: HYPERSENSITIVITY
     Dosage: 5 mg, QD
     Route: 048
     Dates: start: 20101010

REACTIONS (1)
  - Juvenile idiopathic arthritis [Recovered/Resolved]
